FAERS Safety Report 15260168 (Version 1)
Quarter: 2018Q3

REPORT INFORMATION
  Report Type: Spontaneous
  Country: US (occurrence: US)
  Receive Date: 20180719
  Receipt Date: 20180719
  Transmission Date: 20181010
  Serious: Yes (Hospitalization)
  Sender: FDA-Public Use
  Company Number: None

PATIENT
  Age: 59 Year
  Sex: Female
  Weight: 97.4 kg

DRUGS (1)
  1. CARBOPLATIN. [Suspect]
     Active Substance: CARBOPLATIN

REACTIONS (6)
  - Malignant neoplasm progression [None]
  - Pneumonia [None]
  - Condition aggravated [None]
  - Pleural effusion [None]
  - Atelectasis [None]
  - Pneumothorax [None]

NARRATIVE: CASE EVENT DATE: 20180625
